FAERS Safety Report 14846036 (Version 2)
Quarter: 2018Q4

REPORT INFORMATION
  Report Type: Spontaneous
  Country: FR (occurrence: FR)
  Receive Date: 20180504
  Receipt Date: 20181023
  Transmission Date: 20190204
  Serious: Yes (Other)
  Sender: FDA-Public Use
  Company Number: FR-MERCK KGAA-2047185

PATIENT
  Age: 43 Year
  Sex: Female

DRUGS (1)
  1. EUTHYROX [Suspect]
     Active Substance: LEVOTHYROXINE SODIUM
     Indication: THYROIDECTOMY
     Route: 048
     Dates: start: 20170601

REACTIONS (13)
  - Lip swelling [None]
  - Hypothyroidism [None]
  - Stress [None]
  - Visual impairment [None]
  - Depression [None]
  - Blood glucose increased [None]
  - Swelling face [None]
  - Loss of personal independence in daily activities [None]
  - Eye swelling [None]
  - Dizziness [None]
  - Angioedema [None]
  - Fatigue [None]
  - Generalised erythema [None]

NARRATIVE: CASE EVENT DATE: 201707
